FAERS Safety Report 15616911 (Version 1)
Quarter: 2018Q4

REPORT INFORMATION
  Report Type: Spontaneous
  Country: US (occurrence: US)
  Receive Date: 20181109
  Receipt Date: 20181109
  Transmission Date: 20190205
  Serious: Yes (Other)
  Sender: FDA-Public Use
  Company Number: None

PATIENT
  Age: 89 Year
  Sex: Male
  Weight: 81.65 kg

DRUGS (10)
  1. LACTULOSE SOLUTION USP [Suspect]
     Active Substance: LACTULOSE
     Indication: CONSTIPATION
     Dosage: ?          OTHER STRENGTH:10G / 15 ML;QUANTITY:30 ML MILLILITRE(S);?
     Route: 048
     Dates: start: 20180926, end: 20180929
  2. AMLODIPINE [Concomitant]
     Active Substance: AMLODIPINE BESYLATE
  3. ELEQUIS [Concomitant]
  4. FUROSIMIDE [Concomitant]
     Active Substance: FUROSEMIDE
  5. LABETALOL [Concomitant]
     Active Substance: LABETALOL\LABETALOL HYDROCHLORIDE
  6. VITAMIN D3 [Concomitant]
     Active Substance: CHOLECALCIFEROL
  7. POTASSIUM CHLORIDE. [Concomitant]
     Active Substance: POTASSIUM CHLORIDE
  8. MAGNESIUM [Concomitant]
     Active Substance: MAGNESIUM
  9. VITAMIN-B12 [Concomitant]
  10. ZINC. [Concomitant]
     Active Substance: ZINC

REACTIONS (4)
  - Diarrhoea [None]
  - Epistaxis [None]
  - Pruritus generalised [None]
  - Haemorrhage [None]

NARRATIVE: CASE EVENT DATE: 20180926
